FAERS Safety Report 9517815 (Version 1)
Quarter: 2013Q3

REPORT INFORMATION
  Report Type: Spontaneous
  Country: US (occurrence: None)
  Receive Date: 20130910
  Receipt Date: 20130910
  Transmission Date: 20140515
  Serious: Yes (Disabling)
  Sender: FDA-Public Use
  Company Number: None

PATIENT
  Age: 65 Year
  Sex: Female
  Weight: 71.67 kg

DRUGS (1)
  1. LEVOFLOXACIN [Suspect]
     Indication: URINARY TRACT INFECTION
     Route: 048
     Dates: start: 20121203, end: 20121203

REACTIONS (9)
  - Paraesthesia [None]
  - Burning sensation [None]
  - Feeling hot [None]
  - Tenderness [None]
  - Muscle spasms [None]
  - Muscle rigidity [None]
  - Pain [None]
  - Musculoskeletal discomfort [None]
  - Musculoskeletal discomfort [None]
